FAERS Safety Report 25099479 (Version 1)
Quarter: 2025Q1

REPORT INFORMATION
  Report Type: Spontaneous
  Country: US (occurrence: US)
  Receive Date: 20250320
  Receipt Date: 20250320
  Transmission Date: 20250408
  Serious: Yes (Hospitalization, Other)
  Sender: AZURITY PHARMACEUTICALS
  Company Number: US-AZURITY PHARMACEUTICALS, INC.-AZR202503-000768

PATIENT
  Age: 81 Year
  Sex: Female

DRUGS (3)
  1. METHYLPREDNISOLONE ACETATE [Suspect]
     Active Substance: METHYLPREDNISOLONE ACETATE
     Indication: Polymyositis
     Route: 065
  2. DECITABINE [Concomitant]
     Active Substance: DECITABINE
     Indication: Myelodysplastic syndrome
     Route: 065
  3. Immunoglobulin [Concomitant]
     Indication: Hypogammaglobulinaemia
     Route: 042

REACTIONS (3)
  - Febrile neutropenia [Recovered/Resolved]
  - Mycobacterium chelonae infection [Recovered/Resolved]
  - Cellulitis [Recovered/Resolved]
